FAERS Safety Report 7306942-1 (Version None)
Quarter: 2011Q1

REPORT INFORMATION
  Report Type: 
  Country: None (occurrence: None)
  Receive Date: 20110223
  Receipt Date: 20110204
  Transmission Date: 20110831
  Serious: No
  Sender: FDA-Public Use
  Company Number: US-BIOGENIDEC-2011BI003403

PATIENT
  Age: 44 Year
  Sex: Female

DRUGS (1)
  1. TYSABRI [Suspect]
     Indication: MULTIPLE SCLEROSIS
     Route: 042
     Dates: start: 20071014

REACTIONS (13)
  - MEMORY IMPAIRMENT [None]
  - INFUSION SITE PAIN [None]
  - SENSORY DISTURBANCE [None]
  - DISTURBANCE IN ATTENTION [None]
  - VISION BLURRED [None]
  - DIPLOPIA [None]
  - BALANCE DISORDER [None]
  - FATIGUE [None]
  - COGNITIVE DISORDER [None]
  - IRRITABILITY [None]
  - SCAR [None]
  - APHASIA [None]
  - HEADACHE [None]
